FAERS Safety Report 6769954-2 (Version None)
Quarter: 2010Q2

REPORT INFORMATION
  Report Type: 
  Country: None (occurrence: None)
  Receive Date: 20100615
  Receipt Date: 20100609
  Transmission Date: 20101027
  Serious: Yes (Hospitalization)
  Sender: FDA-Public Use
  Company Number: B0659745A

PATIENT
  Sex: Female

DRUGS (1)
  1. LAMICTAL [Suspect]
     Indication: PARTIAL SEIZURES
     Dosage: 100MG PER DAY
     Route: 048
     Dates: start: 20090901, end: 20100517

REACTIONS (3)
  - ANAEMIA MACROCYTIC [None]
  - HYPOVITAMINOSIS [None]
  - VITAMIN B12 DECREASED [None]
